FAERS Safety Report 6593767-8 (Version None)
Quarter: 2010Q1

REPORT INFORMATION
  Report Type: 
  Country: None (occurrence: None)
  Receive Date: 20100212
  Receipt Date: 20100202
  Transmission Date: 20100710
  Serious: Yes (Hospitalization)
  Sender: FDA-Public Use
  Company Number: 2009SP041335

PATIENT
  Age: 40 Year
  Sex: Male

DRUGS (12)
  1. MIRTAZAPINE [Suspect]
     Indication: DEPRESSION
     Dosage: 30 MG;QD;PO
     Route: 048
     Dates: end: 20091202
  2. MIRTAZAPINE [Suspect]
     Indication: SCHIZOPHRENIA
     Dosage: 30 MG;QD;PO
     Route: 048
     Dates: end: 20091202
  3. LEXOTAN (BROMAZEPAM) [Suspect]
     Indication: DEPRESSION
     Dosage: 15 MG;QD;PO
     Route: 048
     Dates: end: 20091202
  4. LEXOTAN (BROMAZEPAM) [Suspect]
     Indication: SCHIZOPHRENIA
     Dosage: 15 MG;QD;PO
     Route: 048
     Dates: end: 20091202
  5. NEULEPTIL (PERICIAZINE) [Suspect]
     Indication: DEPRESSION
     Dosage: 75 MG;QD;PO
     Route: 048
     Dates: end: 20091202
  6. NEULEPTIL (PERICIAZINE) [Suspect]
     Indication: SCHIZOPHRENIA
     Dosage: 75 MG;QD;PO
     Route: 048
     Dates: end: 20091202
  7. BIPERIDEN HYDROCHLORIDE [Concomitant]
  8. ZOLPIDEM TARTRATE [Concomitant]
  9. BROTIZOLAM [Concomitant]
  10. QUAZEPAM [Concomitant]
  11. IPRIFLAVONE [Concomitant]
  12. CHINESE HERBAL MEDICINE [Concomitant]

REACTIONS (6)
  - HYPONATRAEMIA [None]
  - NEUROLEPTIC MALIGNANT SYNDROME [None]
  - OBSESSIVE-COMPULSIVE DISORDER [None]
  - POLYURIA [None]
  - VOMITING [None]
  - WATER INTOXICATION [None]
